FAERS Safety Report 7197668-6 (Version None)
Quarter: 2010Q4

REPORT INFORMATION
  Report Type: 
  Country: None (occurrence: None)
  Receive Date: 20101206
  Receipt Date: 20101122
  Transmission Date: 20110411
  Serious: Yes (Hospitalization, Disabling)
  Sender: FDA-Public Use
  Company Number: 2010SP046935

PATIENT
  Age: 40 Year
  Sex: Female
  Weight: 101.6057 kg

DRUGS (9)
  1. NUVARING [Suspect]
     Indication: PREMENSTRUAL SYNDROME
     Dates: start: 20070301, end: 20080915
  2. COUMADIN [Suspect]
     Indication: PULMONARY EMBOLISM
     Dates: start: 20080920, end: 20100701
  3. FLOVENT [Concomitant]
  4. ALBUTEROL [Concomitant]
  5. ZYRTEC [Concomitant]
  6. SINGULAIR [Concomitant]
  7. ZEGERID [Concomitant]
  8. PROZAC [Concomitant]
  9. CALCIUM [Concomitant]

REACTIONS (7)
  - CELLULITIS [None]
  - HAEMORRHAGE [None]
  - IMPAIRED WORK ABILITY [None]
  - MUSCULOSKELETAL DISORDER [None]
  - PSORIASIS [None]
  - PULMONARY EMBOLISM [None]
  - TOOTH ABSCESS [None]
